FAERS Safety Report 10996586 (Version 1)
Quarter: 2015Q2

REPORT INFORMATION
  Report Type: Spontaneous
  Country: DE (occurrence: DE)
  Receive Date: 20150408
  Receipt Date: 20150408
  Transmission Date: 20150821
  Serious: Yes (Life-Threatening)
  Sender: FDA-Public Use
  Company Number: DE-ROCHE-1547570

PATIENT
  Age: 66 Year
  Sex: Female
  Weight: 80 kg

DRUGS (5)
  1. BONVIVA [Suspect]
     Active Substance: IBANDRONATE SODIUM
     Indication: OSTEOPOROSIS
     Route: 065
     Dates: start: 2009
  2. XARELTO [Concomitant]
     Active Substance: RIVAROXABAN
     Indication: ACTIVATED PROTEIN C RESISTANCE
     Route: 048
     Dates: start: 2011
  3. DIOVAN [Concomitant]
     Active Substance: VALSARTAN
     Indication: HYPERTENSION
     Route: 048
     Dates: start: 2010
  4. PREDNISOLON [Concomitant]
     Active Substance: PREDNISOLONE
     Route: 048
     Dates: start: 2009
  5. NEBILET [Concomitant]
     Active Substance: NEBIVOLOL
     Indication: HYPERTENSION
     Route: 048
     Dates: start: 2010

REACTIONS (11)
  - Hypoaesthesia oral [Unknown]
  - Ocular hyperaemia [Unknown]
  - Dyspnoea [Unknown]
  - Swollen tongue [Unknown]
  - Feeling hot [Unknown]
  - Paraesthesia oral [Unknown]
  - Dysgeusia [Unknown]
  - Tachycardia [Unknown]
  - Anaphylactic shock [Recovering/Resolving]
  - Erythema [Unknown]
  - Cardiovascular disorder [Unknown]

NARRATIVE: CASE EVENT DATE: 20150302
